FAERS Safety Report 6140830-1 (Version None)
Quarter: 2009Q1

REPORT INFORMATION
  Report Type: 
  Country: None (occurrence: None)
  Receive Date: 20090331
  Receipt Date: 20090323
  Transmission Date: 20090719
  Serious: Yes (Life-Threatening, Hospitalization)
  Sender: FDA-Public Use
  Company Number: 2009-193634-NL

PATIENT
  Age: 31 Year
  Sex: Female

DRUGS (2)
  1. MARVELON (BATCH # UNKNOWN) [Suspect]
     Indication: CONTRACEPTION
     Dosage: 1 DF
     Route: 048
     Dates: start: 20060801, end: 20060901
  2. MARVELON (BATCH # UNKNOWN) [Suspect]
     Indication: CONTRACEPTION
     Dosage: 1 DF
     Route: 048
     Dates: start: 20090201, end: 20090201

REACTIONS (3)
  - BLOOD HUMAN CHORIONIC GONADOTROPIN ABNORMAL [None]
  - TREATMENT NONCOMPLIANCE [None]
  - UTERINE HAEMORRHAGE [None]
